FAERS Safety Report 8812715 (Version 4)
Quarter: 2013Q1

REPORT INFORMATION
  Report Type: Spontaneous
  Country: US (occurrence: US)
  Receive Date: 20120927
  Receipt Date: 20130206
  Transmission Date: 20140127
  Serious: Yes (Hospitalization)
  Sender: FDA-Public Use
  Company Number: US-US-EMD SERONO, INC.-7162937

PATIENT
  Sex: Female
  Weight: 68 kg

DRUGS (6)
  1. REBIF [Suspect]
     Indication: PRODUCT USED FOR UNKNOWN INDICATION
     Route: 058
     Dates: start: 20120718, end: 20120911
  2. REBIF [Suspect]
     Dates: start: 2012, end: 201209
  3. REBIF [Suspect]
     Route: 058
     Dates: start: 20130119
  4. METOPROLOL [Concomitant]
     Indication: PRODUCT USED FOR UNKNOWN INDICATION
  5. LIPITOR [Concomitant]
     Indication: PRODUCT USED FOR UNKNOWN INDICATION
  6. ASPIRIN [Concomitant]
     Indication: PRODUCT USED FOR UNKNOWN INDICATION

REACTIONS (5)
  - Coronary artery occlusion [Recovering/Resolving]
  - Coronary artery stenosis [Unknown]
  - Incision site pain [Recovering/Resolving]
  - Platelet count abnormal [Unknown]
  - Influenza like illness [Unknown]
